FAERS Safety Report 17397007 (Version 1)
Quarter: 2020Q1

REPORT INFORMATION
  Report Type: Report from Study
  Country: None (occurrence: CO)
  Receive Date: 20200210
  Receipt Date: 20200210
  Transmission Date: 20200409
  Serious: Yes (Hospitalization)
  Sender: FDA-Public Use
  Company Number: CO-ABBVIE-20K-036-3268414-00

PATIENT
  Age: 62 Year
  Sex: Female
  Weight: 49 kg

DRUGS (1)
  1. IBRUTINIB [Suspect]
     Active Substance: IBRUTINIB
     Indication: MARGINAL ZONE LYMPHOMA
     Route: 048
     Dates: start: 20190906

REACTIONS (7)
  - Haematoma [Recovered/Resolved]
  - Pyrexia [Recovered/Resolved]
  - Product dose omission [Unknown]
  - Immune system disorder [Recovered/Resolved]
  - Inflammation [Recovered/Resolved]
  - Infection [Recovered/Resolved]
  - Rhinitis [Recovered/Resolved]

NARRATIVE: CASE EVENT DATE: 201911
